FAERS Safety Report 5679702-5 (Version None)
Quarter: 2008Q1

REPORT INFORMATION
  Report Type: 
  Country: None (occurrence: None)
  Receive Date: 20080321
  Receipt Date: 20080305
  Transmission Date: 20080703
  Serious: No
  Sender: FDA-Public Use
  Company Number: TPH-00022

PATIENT
  Age: 26 Year
  Sex: Female

DRUGS (1)
  1. TRIQUILAR 21 [Suspect]
     Indication: ORAL CONTRACEPTION
     Dosage: ORAL
     Route: 048
     Dates: start: 20020101, end: 20060403

REACTIONS (10)
  - ABORTION THREATENED [None]
  - CAESAREAN SECTION [None]
  - DIZZINESS [None]
  - HEADACHE [None]
  - HYPERTENSION [None]
  - HYPOAESTHESIA [None]
  - PELVIC PAIN [None]
  - PREGNANCY ON ORAL CONTRACEPTIVE [None]
  - RETCHING [None]
  - VAGINAL HAEMORRHAGE [None]
